FAERS Safety Report 21990275 (Version 1)
Quarter: 2023Q1

REPORT INFORMATION
  Report Type: Spontaneous
  Country: US (occurrence: US)
  Receive Date: 20230214
  Receipt Date: 20230214
  Transmission Date: 20230418
  Serious: Yes (Other)
  Sender: FDA-Public Use
  Company Number: US-JUBILANT CADISTA PHARMACEUTICALS-2023JUB00067

PATIENT
  Age: 51 Year
  Sex: Female

DRUGS (8)
  1. PREDNISONE [Suspect]
     Active Substance: PREDNISONE
     Indication: Adult T-cell lymphoma/leukaemia stage III
     Dosage: UNK, BV-CHP REGIMEN
  2. PREDNISONE [Suspect]
     Active Substance: PREDNISONE
     Indication: Tropical spastic paresis
  3. BRENTUXIMAB VEDOTIN [Suspect]
     Active Substance: BRENTUXIMAB VEDOTIN
     Indication: Tropical spastic paresis
     Dosage: UNK, BV-CHP REGIMEN
  4. BRENTUXIMAB VEDOTIN [Suspect]
     Active Substance: BRENTUXIMAB VEDOTIN
     Indication: Adult T-cell lymphoma/leukaemia stage III
  5. CYCLOPHOSPHAMIDE [Suspect]
     Active Substance: CYCLOPHOSPHAMIDE
     Indication: Tropical spastic paresis
     Dosage: UNK, BV-CHP REGIMEN
  6. CYCLOPHOSPHAMIDE [Suspect]
     Active Substance: CYCLOPHOSPHAMIDE
     Indication: Adult T-cell lymphoma/leukaemia stage III
  7. DOXORUBICIN [Suspect]
     Active Substance: DOXORUBICIN
     Indication: Tropical spastic paresis
     Dosage: UNK, BV-CHP REGIMEN
  8. DOXORUBICIN [Suspect]
     Active Substance: DOXORUBICIN
     Indication: Adult T-cell lymphoma/leukaemia stage III

REACTIONS (1)
  - Febrile neutropenia [Unknown]
